FAERS Safety Report 9240455 (Version 1)
Quarter: 2013Q1

REPORT INFORMATION
  Report Type: Spontaneous
  Country: US (occurrence: None)
  Receive Date: 20121120
  Receipt Date: 20121120
  Transmission Date: 20140127
  Serious: Yes (Hospitalization)
  Sender: FDA-Public Use
  Company Number: CPI 2950

PATIENT
  Sex: Female

DRUGS (2)
  1. KRISTALOSE [Suspect]
     Indication: CONSTIPATION
     Dosage: NOV 2011 - ONGOING; 20G (2X10G) QD PO
  2. AMITIZA [Concomitant]

REACTIONS (4)
  - Abdominal pain upper [None]
  - Neuropathy peripheral [None]
  - Constipation [None]
  - Anxiety [None]
